FAERS Safety Report 15347064 (Version 1)
Quarter: 2018Q3

REPORT INFORMATION
  Report Type: Spontaneous
  Country: US (occurrence: US)
  Receive Date: 20180828
  Receipt Date: 20180828
  Transmission Date: 20181010
  Serious: No
  Sender: FDA-Public Use
  Company Number: None

PATIENT
  Age: 65 Year
  Sex: Female

DRUGS (1)
  1. IBRANCE [Suspect]
     Active Substance: PALBOCICLIB

REACTIONS (6)
  - Feeling abnormal [None]
  - Aphasia [None]
  - Fatigue [None]
  - Alopecia [None]
  - Muscle spasms [None]
  - Gait disturbance [None]

NARRATIVE: CASE EVENT DATE: 20180827
